FAERS Safety Report 22370870 (Version 1)
Quarter: 2023Q2

REPORT INFORMATION
  Report Type: Report from Study
  Country: IL (occurrence: IL)
  Receive Date: 20230526
  Receipt Date: 20230526
  Transmission Date: 20230721
  Serious: Yes (Hospitalization, Other)
  Sender: FDA-Public Use
  Company Number: IL-TAKEDA-2023TUS051492

PATIENT
  Age: 29 Year
  Sex: Female

DRUGS (5)
  1. VELAGLUCERASE ALFA [Suspect]
     Active Substance: VELAGLUCERASE ALFA
     Indication: Gaucher^s disease
     Dosage: 15 INTERNATIONAL UNIT/KILOGRAM, Q2WEEKS
     Route: 065
     Dates: start: 20100203, end: 202112
  2. VELAGLUCERASE ALFA [Suspect]
     Active Substance: VELAGLUCERASE ALFA
     Dosage: 22 INTERNATIONAL UNIT/KILOGRAM, Q2WEEKS
     Route: 065
     Dates: start: 20230109
  3. DIPYRONE [Concomitant]
     Active Substance: DIPYRONE
     Indication: Cholecystectomy
     Dosage: 1000 MILLIGRAM
     Route: 048
     Dates: start: 20191127
  4. ACETAMINOPHEN [Concomitant]
     Active Substance: ACETAMINOPHEN
     Indication: Cholecystectomy
     Dosage: 1000 MILLIGRAM
     Route: 048
     Dates: start: 20191127
  5. TRAMADOL [Concomitant]
     Active Substance: TRAMADOL
     Indication: Cholecystectomy
     Dosage: 1000 MILLIGRAM
     Route: 048
     Dates: start: 20191127

REACTIONS (1)
  - Nephrolithiasis [Recovered/Resolved]

NARRATIVE: CASE EVENT DATE: 20230413
